FAERS Safety Report 18727997 (Version 1)
Quarter: 2021Q1

REPORT INFORMATION
  Report Type: Spontaneous
  Country: US (occurrence: US)
  Receive Date: 20210112
  Receipt Date: 20210112
  Transmission Date: 20210419
  Serious: Yes (Hospitalization, Other)
  Sender: FDA-Public Use
  Company Number: US-CIPLA LTD.-2021US00082

PATIENT

DRUGS (3)
  1. LORAZEPAM. [Concomitant]
     Active Substance: LORAZEPAM
     Indication: GENERALISED TONIC-CLONIC SEIZURE
     Dosage: 2 MILLIGRAM, UNK
     Route: 065
  2. LEVETIRACETAM. [Suspect]
     Active Substance: LEVETIRACETAM
     Dosage: 500 MILLIGRAM, BID
     Route: 065
  3. LEVETIRACETAM. [Suspect]
     Active Substance: LEVETIRACETAM
     Indication: GENERALISED TONIC-CLONIC SEIZURE
     Dosage: LOADED WITH 1 GRAM
     Route: 065

REACTIONS (1)
  - Acute kidney injury [Recovered/Resolved]
